FAERS Safety Report 8503008-X (Version None)
Quarter: 2012Q3

REPORT INFORMATION
  Report Type: 
  Country: None (occurrence: None)
  Receive Date: 20120705
  Receipt Date: 20120705
  Transmission Date: 20120928
  Serious: Yes (Life-Threatening, Hospitalization, Disabling)
  Sender: FDA-Public Use
  Company Number: None

PATIENT
  Age: 50 Year
  Sex: Male
  Weight: 99.7913 kg

DRUGS (1)
  1. MEFLOQUINE HYDROCHLORIDE [Suspect]
     Indication: MALARIA PROPHYLAXIS
     Dosage: 250 MG WEEKLY PO
     Route: 048
     Dates: start: 20081117, end: 20081220

REACTIONS (11)
  - VISUAL IMPAIRMENT [None]
  - WEIGHT DECREASED [None]
  - CARDIAC DISORDER [None]
  - INSOMNIA [None]
  - ANXIETY [None]
  - TOXICITY TO VARIOUS AGENTS [None]
  - DIZZINESS [None]
  - APATHY [None]
  - PARANOIA [None]
  - MOOD SWINGS [None]
  - HALLUCINATION [None]
